FAERS Safety Report 12394543 (Version 1)
Quarter: 2016Q2

REPORT INFORMATION
  Report Type: Spontaneous
  Country: US (occurrence: US)
  Receive Date: 20160523
  Receipt Date: 20160523
  Transmission Date: 20160815
  Serious: Yes (Other)
  Sender: FDA-Public Use
  Company Number: US-GE HEALTHCARE MEDICAL DIAGNOSTICS-OMPQ-PR-1605L-0831

PATIENT
  Age: 63 Year
  Sex: Male

DRUGS (8)
  1. IFOSFAMIDE. [Concomitant]
     Active Substance: IFOSFAMIDE
  2. OMNIPAQUE [Suspect]
     Active Substance: IOHEXOL
     Indication: VENA CAVA THROMBOSIS
  3. CARBOPLATIN. [Concomitant]
     Active Substance: CARBOPLATIN
  4. OMNIPAQUE [Suspect]
     Active Substance: IOHEXOL
     Indication: PULMONARY EMBOLISM
     Route: 042
     Dates: start: 2000, end: 2000
  5. ETOPOSIDE. [Concomitant]
     Active Substance: ETOPOSIDE
  6. CYTARABINE. [Concomitant]
     Active Substance: CYTARABINE
  7. OMNIPAQUE [Suspect]
     Active Substance: IOHEXOL
     Indication: DIAGNOSTIC PROCEDURE
     Route: 042
     Dates: start: 2000, end: 2000
  8. CISPLATIN. [Concomitant]
     Active Substance: CISPLATIN

REACTIONS (1)
  - Nephropathy toxic [Recovered/Resolved]

NARRATIVE: CASE EVENT DATE: 2000
